FAERS Safety Report 4551742-9 (Version None)
Quarter: 2005Q1

REPORT INFORMATION
  Report Type: 
  Country: None (occurrence: None)
  Receive Date: 20050111
  Receipt Date: 20041229
  Transmission Date: 20050727
  Serious: Yes (Death)
  Sender: FDA-Public Use
  Company Number: 2004AP02871

PATIENT
  Age: 69 Year
  Sex: Male

DRUGS (1)
  1. ACCOLATE [Suspect]
     Dosage: 40 MG DAILY PO
     Route: 048
     Dates: start: 20011002

REACTIONS (5)
  - ACUTE MYOCARDIAL INFARCTION [None]
  - CEREBRAL HAEMORRHAGE [None]
  - HEPATIC FUNCTION ABNORMAL [None]
  - OBSTRUCTIVE CHRONIC BRONCHITIS WITH ACUTE EXACERBATION [None]
  - SHOCK [None]
